FAERS Safety Report 18942115 (Version 2)
Quarter: 2021Q1

REPORT INFORMATION
  Report Type: Spontaneous
  Country: US (occurrence: US)
  Receive Date: 20210225
  Receipt Date: 20210316
  Transmission Date: 20210420
  Serious: Yes (Other)
  Sender: FDA-Public Use
  Company Number: US-GILEAD-2021-0518644

PATIENT
  Age: 56 Year
  Sex: Female

DRUGS (6)
  1. VEKLURY [Suspect]
     Active Substance: REMDESIVIR
     Dosage: 100 MG (IN 250 ML OF 0.9% SODIUM CHLORIDE, FOR THE FOLLOWING FOUR DAYS, EACH GIVEN OVER ONE HOUR)
     Route: 042
  2. PANTOPRAZOLE [Concomitant]
     Active Substance: PANTOPRAZOLE
     Dosage: 40 MG DELAYED RELEASE (FOUR HOURS PRIOR TO ANAPHYLAXIS)
     Route: 048
  3. BENZONATATE. [Concomitant]
     Active Substance: BENZONATATE
     Dosage: 200 MG (AN HOUR BEFORE ANAPHYLAXIS)
     Route: 048
  4. ENOXAPARIN [Concomitant]
     Active Substance: ENOXAPARIN
     Dosage: 40 MG (FOUR HOURS PRIOR TO ANAPHYLAXIS)
     Route: 058
  5. VEKLURY [Suspect]
     Active Substance: REMDESIVIR
     Indication: COVID-19
     Dosage: 200 MG (FIRST DAY OF HOSPITAL STAY)
     Route: 042
  6. OXYGEN. [Concomitant]
     Active Substance: OXYGEN
     Indication: COVID-19
     Dosage: LOW?FLOWSUPPLEMENTAL

REACTIONS (1)
  - Anaphylactic reaction [Unknown]
